FAERS Safety Report 17879765 (Version 1)
Quarter: 2020Q2

REPORT INFORMATION
  Report Type: Spontaneous
  Country: US (occurrence: US)
  Receive Date: 20200610
  Receipt Date: 20200610
  Transmission Date: 20200714
  Serious: No
  Sender: FDA-Public Use
  Company Number: US-PFIZER INC-2020221708

PATIENT
  Age: 84 Year
  Sex: Female
  Weight: 39.01 kg

DRUGS (2)
  1. DOFETILIDE. [Suspect]
     Active Substance: DOFETILIDE
     Indication: CARDIAC DISORDER
     Dosage: 250 UG, 4X/DAY (250MCG EVERY 6 HOURS BY MOUTH)
     Route: 048
  2. DOFETILIDE. [Suspect]
     Active Substance: DOFETILIDE
     Indication: HEART RATE IRREGULAR

REACTIONS (1)
  - Weight decreased [Unknown]
